FAERS Safety Report 6587526-X (Version None)
Quarter: 2010Q1

REPORT INFORMATION
  Report Type: 
  Country: None (occurrence: None)
  Receive Date: 20100204
  Receipt Date: 20100118
  Transmission Date: 20100710
  Serious: Yes (Death)
  Sender: FDA-Public Use
  Company Number: IMP_04815_2010

PATIENT
  Age: 38 Year
  Sex: Male

DRUGS (2)
  1. ALPRAZOLAM [Suspect]
     Dosage: DF
  2. HEROIN [Suspect]

REACTIONS (4)
  - CARDIAC ARREST [None]
  - DRUG ABUSE [None]
  - POISONING [None]
  - RESPIRATORY ARREST [None]
